FAERS Safety Report 6788653-4 (Version None)
Quarter: 2010Q2

REPORT INFORMATION
  Report Type: 
  Country: None (occurrence: None)
  Receive Date: 20100623
  Receipt Date: 20080425
  Transmission Date: 20101027
  Serious: No
  Sender: FDA-Public Use
  Company Number: US-PFIZER INC-2008036740

PATIENT
  Sex: Female
  Weight: 53.181 kg

DRUGS (3)
  1. AROMASIN [Suspect]
     Indication: BREAST CANCER STAGE III
     Dates: start: 20080101
  2. FOSAMAX [Concomitant]
  3. CELEXA [Concomitant]

REACTIONS (2)
  - ARTHRALGIA [None]
  - FATIGUE [None]
